FAERS Safety Report 26156947 (Version 1)
Quarter: 2025Q4

REPORT INFORMATION
  Report Type: Spontaneous
  Country: US (occurrence: US)
  Receive Date: 20251215
  Receipt Date: 20251215
  Transmission Date: 20260117
  Serious: No
  Sender: ALCON
  Company Number: US-ALCON LABORATORIES-ALC2025US006930

PATIENT
  Age: 80 Year
  Sex: Female

DRUGS (1)
  1. ACOLTREMON [Suspect]
     Active Substance: ACOLTREMON
     Indication: Product used for unknown indication
     Dosage: INSTILL 1 DROP INTO BOTH EYES TWICE A DAY
     Route: 047
     Dates: start: 20251022, end: 20251023

REACTIONS (6)
  - Fluid retention [Unknown]
  - Lacrimation increased [Unknown]
  - Hyperhidrosis [Unknown]
  - Secretion discharge [Unknown]
  - Throat irritation [Unknown]
  - Dysphonia [Unknown]
